FAERS Safety Report 6748103-0 (Version None)
Quarter: 2010Q2

REPORT INFORMATION
  Report Type: 
  Country: None (occurrence: None)
  Receive Date: 20100531
  Receipt Date: 20100521
  Transmission Date: 20101027
  Serious: Yes (Other)
  Sender: FDA-Public Use
  Company Number: US-JNJFOC-20100509473

PATIENT
  Sex: Female

DRUGS (5)
  1. FENTANYL CITRATE [Suspect]
     Indication: PAIN
     Route: 062
  2. FENTANYL CITRATE [Suspect]
     Route: 062
  3. FENTANYL CITRATE [Suspect]
     Route: 062
  4. ACTAVIS FENTANYL TRANSDEMAL SYSTEM [Suspect]
     Indication: PAIN
     Route: 062
  5. DIOVAN [Concomitant]
     Route: 048

REACTIONS (9)
  - ADVERSE EVENT [None]
  - CLOSTRIDIAL INFECTION [None]
  - DIZZINESS [None]
  - DRUG EFFECT INCREASED [None]
  - EAR INFECTION [None]
  - FEELING ABNORMAL [None]
  - SOMNOLENCE [None]
  - TREMOR [None]
  - WITHDRAWAL SYNDROME [None]
